FAERS Safety Report 6123582-0 (Version None)
Quarter: 2009Q1

REPORT INFORMATION
  Report Type: 
  Country: None (occurrence: None)
  Receive Date: 20090317
  Receipt Date: 20090317
  Transmission Date: 20090719
  Serious: No
  Sender: FDA-Public Use
  Company Number: None

PATIENT
  Sex: Female
  Weight: 13.61 kg

DRUGS (1)
  1. SYNTHROID [Suspect]
     Indication: CONGENITAL HYPOTHYROIDISM
     Dosage: 125MCG. LIFETIME

REACTIONS (2)
  - AGGRESSION [None]
  - PRODUCT QUALITY ISSUE [None]
